FAERS Safety Report 16946611 (Version 1)
Quarter: 2019Q4

REPORT INFORMATION
  Report Type: Spontaneous
  Country: IT (occurrence: IT)
  Receive Date: 20191022
  Receipt Date: 20191022
  Transmission Date: 20200122
  Serious: Yes (Hospitalization)
  Sender: FDA-Public Use
  Company Number: IT-ASTRAZENECA-2019SF47266

PATIENT
  Age: 63 Year
  Sex: Male

DRUGS (7)
  1. BIFRIL [Concomitant]
     Active Substance: ZOFENOPRIL
  2. INDAPAMIDE. [Concomitant]
     Active Substance: INDAPAMIDE
  3. CLEXANE T [Concomitant]
     Active Substance: ENOXAPARIN SODIUM
  4. OMEPRAZOLE. [Concomitant]
     Active Substance: OMEPRAZOLE
  5. BISOPROLOL FUMARATE. [Concomitant]
     Active Substance: BISOPROLOL FUMARATE
  6. TAGRISSO [Suspect]
     Active Substance: OSIMERTINIB
     Indication: LUNG ADENOCARCINOMA
     Route: 048
     Dates: start: 20190509, end: 20190901
  7. ALFUZOSIN HYDROCHLORIDE. [Concomitant]
     Active Substance: ALFUZOSIN HYDROCHLORIDE

REACTIONS (3)
  - Suffocation feeling [Recovered/Resolved]
  - Pneumonitis [Recovered/Resolved]
  - Dyspnoea [Recovered/Resolved]

NARRATIVE: CASE EVENT DATE: 20190901
